FAERS Safety Report 19252443 (Version 1)
Quarter: 2021Q2

REPORT INFORMATION
  Report Type: Report from Study
  Country: AU (occurrence: AU)
  Receive Date: 20210513
  Receipt Date: 20210513
  Transmission Date: 20210717
  Serious: Yes (Hospitalization, Other)
  Sender: FDA-Public Use
  Company Number: NVSC2021AU085808

PATIENT
  Sex: Female

DRUGS (1)
  1. MAYZENT [Suspect]
     Active Substance: SIPONIMOD
     Indication: SECONDARY PROGRESSIVE MULTIPLE SCLEROSIS
     Dosage: 2 MG, QD
     Route: 048
     Dates: start: 20210120

REACTIONS (13)
  - Fracture [Unknown]
  - Mobility decreased [Unknown]
  - Sciatica [Unknown]
  - Speech disorder [Unknown]
  - Drug ineffective [Unknown]
  - Malaise [Unknown]
  - Memory impairment [Unknown]
  - Bladder disorder [Unknown]
  - Asthenia [Unknown]
  - Fatigue [Unknown]
  - Dry mouth [Unknown]
  - Back pain [Unknown]
  - Pain in extremity [Unknown]
